FAERS Safety Report 5445958-7 (Version None)
Quarter: 2007Q3

REPORT INFORMATION
  Report Type: 
  Country: None (occurrence: None)
  Receive Date: 20070904
  Receipt Date: 20070829
  Transmission Date: 20080115
  Serious: Yes (Death)
  Sender: FDA-Public Use
  Company Number: 2007SP017492

PATIENT
  Age: 65 Year
  Sex: Male
  Weight: 63 kg

DRUGS (9)
  1. TEMODAL [Suspect]
     Indication: GLIOBLASTOMA
     Dosage: 150 MG/M2; QD; PO, 150 MG/M2; QD; PO, 150 MG/M2; QD; PO
     Route: 048
     Dates: start: 20061102, end: 20061106
  2. TEMODAL [Suspect]
     Indication: RECURRENT CANCER
     Dosage: 150 MG/M2; QD; PO, 150 MG/M2; QD; PO, 150 MG/M2; QD; PO
     Route: 048
     Dates: start: 20061102, end: 20061106
  3. TEMODAL [Suspect]
     Indication: GLIOBLASTOMA
     Dosage: 150 MG/M2; QD; PO, 150 MG/M2; QD; PO, 150 MG/M2; QD; PO
     Route: 048
     Dates: start: 20061208, end: 20061212
  4. TEMODAL [Suspect]
     Indication: RECURRENT CANCER
     Dosage: 150 MG/M2; QD; PO, 150 MG/M2; QD; PO, 150 MG/M2; QD; PO
     Route: 048
     Dates: start: 20061208, end: 20061212
  5. TEMODAL [Suspect]
     Indication: GLIOBLASTOMA
     Dosage: 150 MG/M2; QD; PO, 150 MG/M2; QD; PO, 150 MG/M2; QD; PO
     Route: 048
     Dates: start: 20070114, end: 20070118
  6. TEMODAL [Suspect]
     Indication: RECURRENT CANCER
     Dosage: 150 MG/M2; QD; PO, 150 MG/M2; QD; PO, 150 MG/M2; QD; PO
     Route: 048
     Dates: start: 20070114, end: 20070118
  7. EXCEGRAN [Concomitant]
  8. DEPAKENE [Concomitant]
  9. IRINOTECAN HCL [Concomitant]

REACTIONS (5)
  - DEPRESSED LEVEL OF CONSCIOUSNESS [None]
  - DISEASE PROGRESSION [None]
  - INTERSTITIAL LUNG DISEASE [None]
  - MULTI-ORGAN FAILURE [None]
  - PNEUMOCYSTIS JIROVECI PNEUMONIA [None]
